FAERS Safety Report 25918390 (Version 1)
Quarter: 2025Q4

REPORT INFORMATION
  Report Type: Spontaneous
  Country: EU (occurrence: EU)
  Receive Date: 20251014
  Receipt Date: 20251014
  Transmission Date: 20260119
  Serious: Yes (Hospitalization, Other)
  Sender: CHEPLAPHARM
  Company Number: None

PATIENT
  Age: 58 Year
  Sex: Male

DRUGS (7)
  1. OLANZAPINE [Suspect]
     Active Substance: OLANZAPINE
  2. MEPHEDRONE [Suspect]
     Active Substance: MEPHEDRONE
  3. SILDENAFIL [Suspect]
     Active Substance: SILDENAFIL
  4. LORAZEPAM [Suspect]
     Active Substance: LORAZEPAM
  5. FLUOXETINE HYDROCHLORIDE [Suspect]
     Active Substance: FLUOXETINE HYDROCHLORIDE
  6. CLOTIAZEPAM [Suspect]
     Active Substance: CLOTIAZEPAM
  7. PROLACTIN [Concomitant]
     Active Substance: PROLACTIN

REACTIONS (5)
  - Coma [Recovered/Resolved]
  - Vomiting [Recovered/Resolved]
  - Hypertension [Recovered/Resolved]
  - Drug use disorder [Unknown]
  - Drug abuse [Unknown]

NARRATIVE: CASE EVENT DATE: 20250619
